FAERS Safety Report 9639250 (Version 1)
Quarter: 2013Q4

REPORT INFORMATION
  Report Type: Spontaneous
  Country: US (occurrence: US)
  Receive Date: 20131022
  Receipt Date: 20131022
  Transmission Date: 20140711
  Serious: No
  Sender: FDA-Public Use
  Company Number: US-009507513-1310USA010162

PATIENT
  Sex: Female

DRUGS (1)
  1. MIRALAX [Suspect]
     Indication: CONSTIPATION
     Dosage: UNK
     Route: 048
     Dates: start: 201309

REACTIONS (3)
  - Faecal incontinence [Unknown]
  - Flatulence [Recovering/Resolving]
  - Incorrect drug administration duration [Unknown]
